FAERS Safety Report 5810727-2 (Version None)
Quarter: 2008Q3

REPORT INFORMATION
  Report Type: 
  Country: None (occurrence: None)
  Receive Date: 20080715
  Receipt Date: 20080709
  Transmission Date: 20090109
  Serious: Yes (Death, Other)
  Sender: FDA-Public Use
  Company Number: US-BAXTER-2008BH004503

PATIENT
  Age: 6 Year
  Sex: Male

DRUGS (3)
  1. HEPARIN LOCK-FLUSH [Suspect]
     Indication: CARDIAC OPERATION
     Route: 065
     Dates: start: 20060310, end: 20060310
  2. HEPARIN LOCK-FLUSH [Suspect]
     Route: 065
     Dates: start: 20060311, end: 20060907
  3. POTASSIUM CHLORIDE [Concomitant]
     Indication: DRUG USE FOR UNKNOWN INDICATION
     Route: 065
     Dates: start: 20060901, end: 20060901

REACTIONS (2)
  - DEATH [None]
  - FUNGAL INFECTION [None]
